FAERS Safety Report 24762698 (Version 1)
Quarter: 2024Q4

REPORT INFORMATION
  Report Type: Spontaneous
  Country: US (occurrence: US)
  Receive Date: 20241221
  Receipt Date: 20241221
  Transmission Date: 20250114
  Serious: No
  Sender: ABBVIE
  Company Number: US-ABBVIE-6056299

PATIENT

DRUGS (1)
  1. RINVOQ [Suspect]
     Active Substance: UPADACITINIB
     Indication: Product used for unknown indication
     Route: 048

REACTIONS (7)
  - Asthenia [Unknown]
  - Rash [Unknown]
  - Insomnia [Unknown]
  - Cyst [Unknown]
  - Bacterial infection [Unknown]
  - Pain of skin [Unknown]
  - Fatigue [Unknown]

NARRATIVE: CASE EVENT DATE: 20240701
